FAERS Safety Report 10077132 (Version 2)
Quarter: 2014Q2

REPORT INFORMATION
  Report Type: Spontaneous
  Country: US (occurrence: US)
  Receive Date: 20140414
  Receipt Date: 20140528
  Transmission Date: 20141212
  Serious: Yes (Other)
  Sender: FDA-Public Use
  Company Number: US-FRI-1000066358

PATIENT
  Age: 78 Year
  Sex: Female

DRUGS (3)
  1. LEXAPRO [Suspect]
     Indication: DEPRESSION
     Dosage: 20 MG
     Route: 048
     Dates: start: 2011
  2. TOPROL [Concomitant]
     Indication: ATRIAL FIBRILLATION
     Dates: start: 1994
  3. PREVACID [Concomitant]
     Indication: DYSPEPSIA

REACTIONS (2)
  - Musculoskeletal disorder [Recovered/Resolved]
  - Depression [Recovered/Resolved]
